FAERS Safety Report 18102533 (Version 2)
Quarter: 2020Q4

REPORT INFORMATION
  Report Type: Report from Study
  Country: None (occurrence: US)
  Receive Date: 20200803
  Receipt Date: 20201005
  Transmission Date: 20210113
  Serious: Yes (Hospitalization)
  Sender: FDA-Public Use
  Company Number: US-ABBVIE-20K-163-3505512-00

PATIENT
  Sex: Male

DRUGS (2)
  1. IMBRUVICA [Suspect]
     Active Substance: IBRUTINIB
     Indication: CHRONIC LYMPHOCYTIC LEUKAEMIA
     Route: 048
     Dates: start: 20200527
  2. IMBRUVICA [Suspect]
     Active Substance: IBRUTINIB
     Indication: CHRONIC LYMPHOCYTIC LEUKAEMIA

REACTIONS (21)
  - Burning sensation [Unknown]
  - Mental disorder [Unknown]
  - Cough [Unknown]
  - Limb discomfort [Unknown]
  - Bladder catheterisation [Unknown]
  - Oedema peripheral [Unknown]
  - Thinking abnormal [Unknown]
  - Gait disturbance [Unknown]
  - Abdominal pain [Unknown]
  - Depressed level of consciousness [Unknown]
  - Dehydration [Unknown]
  - Back pain [Unknown]
  - Erythema [Unknown]
  - Pain in extremity [Unknown]
  - Dizziness [Unknown]
  - Fall [Unknown]
  - Aphasia [Unknown]
  - Micturition frequency decreased [Unknown]
  - Decreased appetite [Unknown]
  - Contusion [Unknown]
  - Pain [Unknown]

NARRATIVE: CASE EVENT DATE: 2020
